FAERS Safety Report 9807135 (Version 3)
Quarter: 2016Q2

REPORT INFORMATION
  Report Type: Report from Study
  Country: US (occurrence: US)
  Receive Date: 20140110
  Receipt Date: 20160603
  Transmission Date: 20160815
  Serious: Yes (Hospitalization, Other)
  Sender: FDA-Public Use
  Company Number: US-ROCHE-1331636

PATIENT
  Age: 50 Year
  Sex: Male

DRUGS (3)
  1. PEGASYS [Suspect]
     Active Substance: PEGINTERFERON ALFA-2A
     Indication: CHRONIC HEPATITIS C
     Route: 058
     Dates: start: 20121226, end: 20130617
  2. COPEGUS [Suspect]
     Active Substance: RIBAVIRIN
     Indication: CHRONIC HEPATITIS C
     Dosage: 400/400 MG IN DIVIDED DOSES.?2 TWICE A DAY
     Route: 048
     Dates: start: 20121226, end: 20130617
  3. ACETAMINOPHEN. [Concomitant]
     Active Substance: ACETAMINOPHEN

REACTIONS (46)
  - Pyrexia [Not Recovered/Not Resolved]
  - Neoplasm [Unknown]
  - Skin ulcer [Unknown]
  - Anxiety [Not Recovered/Not Resolved]
  - Diarrhoea [Recovering/Resolving]
  - Weight increased [Unknown]
  - Hyperhidrosis [Unknown]
  - Haemorrhage [Not Recovered/Not Resolved]
  - Tooth abscess [Unknown]
  - Dysgeusia [Unknown]
  - Hot flush [Unknown]
  - Nasopharyngitis [Unknown]
  - Renal failure [Not Recovered/Not Resolved]
  - Sneezing [Unknown]
  - Constipation [Unknown]
  - Staphylococcal infection [Not Recovered/Not Resolved]
  - Tremor [Unknown]
  - Face oedema [Unknown]
  - Lipoma excision [Unknown]
  - Myalgia [Unknown]
  - Gastrointestinal haemorrhage [Unknown]
  - Nausea [Not Recovered/Not Resolved]
  - Pain [Not Recovered/Not Resolved]
  - Feeling abnormal [Unknown]
  - Asthenia [Unknown]
  - Nail discolouration [Unknown]
  - Pneumonia [Unknown]
  - Headache [Not Recovered/Not Resolved]
  - Lethargy [Unknown]
  - Weight decreased [Unknown]
  - Tooth fracture [Unknown]
  - Arthralgia [Unknown]
  - Lipoma [Unknown]
  - Hypoaesthesia [Unknown]
  - Influenza like illness [Unknown]
  - Cold sweat [Unknown]
  - Depression [Not Recovered/Not Resolved]
  - Chills [Unknown]
  - Subcutaneous abscess [Unknown]
  - Alopecia [Unknown]
  - Malaise [Unknown]
  - Panic attack [Unknown]
  - Vomiting [Not Recovered/Not Resolved]
  - Fatigue [Not Recovered/Not Resolved]
  - Abdominal pain upper [Unknown]
  - Arthritis [Unknown]

NARRATIVE: CASE EVENT DATE: 20130130
